FAERS Safety Report 4528191-2 (Version None)
Quarter: 2004Q4

REPORT INFORMATION
  Report Type: 
  Country: None (occurrence: None)
  Receive Date: 20041130
  Receipt Date: 20040819
  Transmission Date: 20050328
  Serious: No
  Sender: FDA-Public Use
  Company Number: WAES 0407USA00106

PATIENT
  Age: 43 Year
  Sex: Female
  Weight: 78.0187 kg

DRUGS (3)
  1. ZETIA [Suspect]
     Indication: BLOOD CHOLESTEROL INCREASED
     Dosage: 10 MG/DAILY/PO
     Route: 048
     Dates: start: 20040401, end: 20040501
  2. VITAMIN B COMPLEX CAP [Concomitant]
  3. VITAMINS (UNSPECIFIED) [Concomitant]

REACTIONS (2)
  - BLOOD CREATINE [None]
  - MYOPATHY [None]
